FAERS Safety Report 15211101 (Version 1)
Quarter: 2018Q3

REPORT INFORMATION
  Report Type: Spontaneous
  Country: US (occurrence: US)
  Receive Date: 20180630
  Receipt Date: 20180630
  Transmission Date: 20181010
  Serious: Yes (Hospitalization, Disabling, Other)
  Sender: FDA-Public Use
  Company Number: None

PATIENT
  Age: 57 Year
  Sex: Female
  Weight: 139.5 kg

DRUGS (1)
  1. OXYCONTIN [Suspect]
     Active Substance: OXYCODONE HYDROCHLORIDE

REACTIONS (4)
  - Weight increased [None]
  - Osteoporosis [None]
  - Drug dependence [None]
  - Product quality issue [None]

NARRATIVE: CASE EVENT DATE: 20170612
